FAERS Safety Report 4273282-7 (Version None)
Quarter: 2004Q1

REPORT INFORMATION
  Report Type: 
  Country: None (occurrence: None)
  Receive Date: 20040116
  Receipt Date: 20040108
  Transmission Date: 20041129
  Serious: Yes (Hospitalization)
  Sender: FDA-Public Use
  Company Number: WAES 0401USA00793

PATIENT
  Age: 15 Year
  Sex: Female

DRUGS (2)
  1. [THERAPY UNSPECIFIED] [Suspect]
     Indication: MEDICATION ERROR
     Route: 048
  2. DECADRON [Suspect]
     Indication: MEDICATION ERROR
     Route: 048

REACTIONS (4)
  - ADRENAL INSUFFICIENCY [None]
  - INTENTIONAL OVERDOSE [None]
  - PYREXIA [None]
  - SHOCK [None]
